FAERS Safety Report 10163221 (Version 1)
Quarter: 2014Q2

REPORT INFORMATION
  Report Type: Spontaneous
  Country: US (occurrence: US)
  Receive Date: 20140509
  Receipt Date: 20140509
  Transmission Date: 20141212
  Serious: No
  Sender: FDA-Public Use
  Company Number: US-BAYER-2014-068339

PATIENT
  Sex: Male

DRUGS (1)
  1. MAGNEVIST [Suspect]
     Dosage: 10 ML, ONCE

REACTIONS (4)
  - Urticaria [None]
  - Vomiting [None]
  - Nasal congestion [None]
  - Nausea [None]
